FAERS Safety Report 14732592 (Version 1)
Quarter: 2018Q2

REPORT INFORMATION
  Report Type: Other
  Country: AU (occurrence: AU)
  Receive Date: 20180409
  Receipt Date: 20180409
  Transmission Date: 20180711
  Serious: Yes (Death, Other)
  Sender: FDA-Public Use
  Company Number: AU-ACTELION-A-CH2018-169935

PATIENT
  Age: 54 Year
  Sex: Male

DRUGS (4)
  1. OPSUMIT [Suspect]
     Active Substance: MACITENTAN
     Indication: PULMONARY HYPERTENSION
     Route: 048
  2. NITRIC OXIDE. [Concomitant]
     Active Substance: NITRIC OXIDE
     Route: 055
  3. SILDENAFIL. [Concomitant]
     Active Substance: SILDENAFIL
  4. EPOPROSTENOL SODIUM. [Suspect]
     Active Substance: EPOPROSTENOL SODIUM
     Indication: PULMONARY HYPERTENSION
     Route: 042

REACTIONS (6)
  - Haemofiltration [Unknown]
  - Intestinal obstruction [Unknown]
  - Heparin-induced thrombocytopenia [Unknown]
  - Pneumonia [Unknown]
  - Pulmonary tumour thrombotic microangiopathy [Fatal]
  - Renal failure [Unknown]
